FAERS Safety Report 20229485 (Version 7)
Quarter: 2023Q4

REPORT INFORMATION
  Report Type: Spontaneous
  Country: CA (occurrence: CA)
  Receive Date: 20211225
  Receipt Date: 20231201
  Transmission Date: 20240110
  Serious: Yes (Death, Other)
  Sender: FDA-Public Use
  Company Number: CA-NOVARTISPH-NVSC2021CA290445

PATIENT
  Age: 46 Year
  Sex: Male

DRUGS (10)
  1. SANDOSTATIN LAR DEPOT [Suspect]
     Active Substance: OCTREOTIDE ACETATE
     Indication: Gastroenteropancreatic neuroendocrine tumour disease
     Dosage: 30 MG, Q4W
     Route: 030
  2. SANDOSTATIN LAR DEPOT [Suspect]
     Active Substance: OCTREOTIDE ACETATE
     Dosage: 20 MG, Q4W
     Route: 030
  3. SANDOSTATIN LAR DEPOT [Suspect]
     Active Substance: OCTREOTIDE ACETATE
     Dosage: 30 MG, QMO
     Route: 030
  4. SANDOSTATIN LAR DEPOT [Suspect]
     Active Substance: OCTREOTIDE ACETATE
     Dosage: 30 MG, Q4W
     Route: 030
  5. SANDOSTATIN LAR DEPOT [Suspect]
     Active Substance: OCTREOTIDE ACETATE
     Dosage: 30 MG, QMO
     Route: 030
  6. LENVIMA [Suspect]
     Active Substance: LENVATINIB
     Indication: Product used for unknown indication
     Dosage: 8 MG, QD
     Route: 048
  7. LENVIMA [Suspect]
     Active Substance: LENVATINIB
     Dosage: 12 MG, QD (EVERY 1 DAY))
     Route: 048
  8. LENVIMA [Suspect]
     Active Substance: LENVATINIB
     Dosage: 12 MG, QD (EVERY 1 DAY)
     Route: 048
  9. LENVIMA [Suspect]
     Active Substance: LENVATINIB
     Dosage: 8 MG, QD (EVERY 1 DAY)
     Route: 048
  10. NIFEDIPINE [Concomitant]
     Active Substance: NIFEDIPINE
     Indication: Product used for unknown indication
     Dosage: UNK
     Route: 065

REACTIONS (73)
  - Death [Fatal]
  - Anxiety [Fatal]
  - Arthralgia [Fatal]
  - Back pain [Fatal]
  - Blister [Fatal]
  - Blood creatinine increased [Fatal]
  - Blood pressure increased [Fatal]
  - Blood uric acid increased [Fatal]
  - Cell marker increased [Fatal]
  - Cough [Fatal]
  - Depressed mood [Fatal]
  - Dysphonia [Fatal]
  - Dysstasia [Fatal]
  - Eating disorder symptom [Fatal]
  - Epigastric discomfort [Fatal]
  - Eructation [Fatal]
  - Faeces soft [Fatal]
  - Feeling cold [Fatal]
  - Frequent bowel movements [Fatal]
  - Gait disturbance [Fatal]
  - Gastric haemorrhage [Fatal]
  - Glomerular filtration rate decreased [Fatal]
  - Glossodynia [Fatal]
  - Gout [Fatal]
  - Herpes zoster [Fatal]
  - Hyperkeratosis [Fatal]
  - Hyperproteinaemia [Fatal]
  - Influenza [Fatal]
  - Insomnia [Fatal]
  - Joint stiffness [Fatal]
  - Joint swelling [Fatal]
  - Limb discomfort [Fatal]
  - Muscle spasms [Fatal]
  - Muscle tightness [Fatal]
  - Musculoskeletal discomfort [Fatal]
  - Nasopharyngitis [Fatal]
  - Nervousness [Fatal]
  - Oedema [Fatal]
  - Oedema peripheral [Fatal]
  - Pain in extremity [Fatal]
  - Palmar-plantar erythrodysaesthesia syndrome [Fatal]
  - Pancreatic neoplasm [Fatal]
  - Stress [Fatal]
  - Taste disorder [Fatal]
  - Weight decreased [Fatal]
  - Pain [Fatal]
  - Malaise [Fatal]
  - Fatigue [Fatal]
  - Blood test abnormal [Fatal]
  - Pancreatic neuroendocrine tumour [Fatal]
  - Paralysis [Fatal]
  - Renal impairment [Fatal]
  - Flatulence [Fatal]
  - Gastrointestinal disorder [Fatal]
  - Abdominal distension [Fatal]
  - Rash [Fatal]
  - Decreased appetite [Fatal]
  - Pruritus [Fatal]
  - Nausea [Fatal]
  - Headache [Fatal]
  - Malignant neoplasm progression [Fatal]
  - Dyspepsia [Fatal]
  - Vomiting [Fatal]
  - Abdominal pain upper [Fatal]
  - Abdominal discomfort [Fatal]
  - Diarrhoea [Fatal]
  - Liver disorder [Fatal]
  - Renal disorder [Fatal]
  - Ascites [Fatal]
  - Abdominal pain [Fatal]
  - Injection site mass [Fatal]
  - Injection site pain [Fatal]
  - Needle issue [Fatal]
